FAERS Safety Report 6987811-3 (Version None)
Quarter: 2010Q3

REPORT INFORMATION
  Report Type: 
  Country: None (occurrence: None)
  Receive Date: 20100916
  Receipt Date: 20100907
  Transmission Date: 20110219
  Serious: Yes (Hospitalization)
  Sender: FDA-Public Use
  Company Number: IT-SANOFI-AVENTIS-2010SA049544

PATIENT
  Age: 66 Year
  Sex: Female

DRUGS (4)
  1. PLAVIX [Suspect]
     Indication: CARDIAC PACEMAKER INSERTION
     Route: 048
     Dates: start: 20100803, end: 20100803
  2. TORVAST [Suspect]
     Route: 048
     Dates: start: 20100803, end: 20100803
  3. FUROSEMIDE [Concomitant]
     Indication: PRODUCT USED FOR UNKNOWN INDICATION
     Route: 065
  4. ASPIRIN [Concomitant]
     Indication: PRODUCT USED FOR UNKNOWN INDICATION
     Route: 048

REACTIONS (2)
  - OROPHARYNGEAL PAIN [None]
  - RASH GENERALISED [None]
